FAERS Safety Report 14666345 (Version 1)
Quarter: 2018Q1

REPORT INFORMATION
  Report Type: Spontaneous
  Country: US (occurrence: US)
  Receive Date: 20180321
  Receipt Date: 20180321
  Transmission Date: 20180509
  Serious: Yes (Other)
  Sender: FDA-Public Use
  Company Number: PHEH2018US010726

PATIENT
  Age: 60 Year
  Sex: Female

DRUGS (2)
  1. FEMARA [Suspect]
     Active Substance: LETROZOLE
     Indication: BREAST CANCER METASTATIC
     Route: 065
  2. IBRANCE [Suspect]
     Active Substance: PALBOCICLIB
     Indication: BREAST CANCER METASTATIC
     Route: 065

REACTIONS (6)
  - Breast cancer metastatic [Unknown]
  - Haemoglobin abnormal [Unknown]
  - Metastases to bone [Unknown]
  - Platelet count decreased [Not Recovered/Not Resolved]
  - Metastases to liver [Unknown]
  - Malignant neoplasm progression [Unknown]
